FAERS Safety Report 21298906 (Version 1)
Quarter: 2022Q3

REPORT INFORMATION
  Report Type: Spontaneous
  Country: US (occurrence: US)
  Receive Date: 20220906
  Receipt Date: 20220906
  Transmission Date: 20221027
  Serious: No
  Sender: FDA-Public Use
  Company Number: US-BAYER-2022A112219

PATIENT
  Age: 43 Year
  Sex: Female

DRUGS (1)
  1. GADOBUTROL [Suspect]
     Active Substance: GADOBUTROL
     Dosage: UNK, ONCE
     Route: 042

REACTIONS (2)
  - Throat irritation [None]
  - Cough [None]

NARRATIVE: CASE EVENT DATE: 20220808
